FAERS Safety Report 17562207 (Version 1)
Quarter: 2020Q1

REPORT INFORMATION
  Report Type: Spontaneous
  Country: CA (occurrence: CA)
  Receive Date: 20200319
  Receipt Date: 20200319
  Transmission Date: 20200409
  Serious: Yes (Hospitalization, Other)
  Sender: FDA-Public Use
  Company Number: CA-ALLERGAN-2012030US

PATIENT
  Sex: Male

DRUGS (9)
  1. RISPERDAL [Concomitant]
     Active Substance: RISPERIDONE
     Indication: PRODUCT USED FOR UNKNOWN INDICATION
     Dosage: INJECT
     Route: 065
  2. CYMBALTA [Suspect]
     Active Substance: DULOXETINE HYDROCHLORIDE
     Indication: MAJOR DEPRESSION
     Dosage: 30 MG
     Route: 065
  3. ESCITALOPRAM OXALATE - BP [Suspect]
     Active Substance: ESCITALOPRAM OXALATE
     Dosage: 20 MG
     Route: 065
  4. RIVOTRIL [Suspect]
     Active Substance: CLONAZEPAM
     Indication: PRODUCT USED FOR UNKNOWN INDICATION
     Route: 065
  5. ZYPREXA ZYDIZ [Suspect]
     Active Substance: OLANZAPINE
     Indication: MAJOR DEPRESSION
     Route: 065
  6. ESCITALOPRAM OXALATE - BP [Suspect]
     Active Substance: ESCITALOPRAM OXALATE
     Indication: MAJOR DEPRESSION
     Dosage: 30 MG
     Route: 065
     Dates: start: 20100703
  7. PANTALOC [Concomitant]
     Indication: PRODUCT USED FOR UNKNOWN INDICATION
     Route: 065
  8. TOPAMAX [Concomitant]
     Active Substance: TOPIRAMATE
     Indication: PRODUCT USED FOR UNKNOWN INDICATION
     Route: 065
  9. CYMBALTA [Suspect]
     Active Substance: DULOXETINE HYDROCHLORIDE
     Dosage: 60 MG
     Route: 065

REACTIONS (27)
  - Mental disorder [Unknown]
  - Hypervigilance [Unknown]
  - Hallucination [Unknown]
  - Vomiting [Unknown]
  - Tinnitus [Unknown]
  - Malaise [Unknown]
  - Agitation [Unknown]
  - Photophobia [Unknown]
  - Adverse drug reaction [Unknown]
  - Thinking abnormal [Unknown]
  - Overdose [Unknown]
  - Chest pain [Unknown]
  - Nausea [Unknown]
  - Akathisia [Unknown]
  - Adverse drug reaction [Unknown]
  - Suicidal ideation [Unknown]
  - Somnambulism [Unknown]
  - Mania [Unknown]
  - Paranoia [Unknown]
  - Insomnia [Unknown]
  - Anger [Unknown]
  - Therapy cessation [Unknown]
  - Sleep talking [Unknown]
  - Muscle spasms [Unknown]
  - Asthenia [Unknown]
  - Anger [Unknown]
  - Headache [Unknown]

NARRATIVE: CASE EVENT DATE: 20100616
